FAERS Safety Report 7563847-9 (Version None)
Quarter: 2011Q2

REPORT INFORMATION
  Report Type: 
  Country: None (occurrence: None)
  Receive Date: 20110622
  Receipt Date: 20110617
  Transmission Date: 20111010
  Serious: Yes (Hospitalization, Other)
  Sender: FDA-Public Use
  Company Number: US-PFIZER INC-2010006431

PATIENT
  Sex: Male

DRUGS (1)
  1. CHANTIX [Suspect]
     Indication: SMOKING CESSATION THERAPY
     Dosage: STARTER PACK/ 1MG
     Dates: start: 20070601, end: 20070801

REACTIONS (5)
  - DEPRESSION [None]
  - HALLUCINATION [None]
  - IMPAIRED DRIVING ABILITY [None]
  - SUICIDE ATTEMPT [None]
  - ABNORMAL BEHAVIOUR [None]
